FAERS Safety Report 24106517 (Version 4)
Quarter: 2024Q3

REPORT INFORMATION
  Report Type: Report from Study
  Country: US (occurrence: US)
  Receive Date: 20240717
  Receipt Date: 20240731
  Transmission Date: 20241017
  Serious: Yes (Hospitalization)
  Sender: ABBVIE
  Company Number: US-ABBVIE-5841790

PATIENT
  Sex: Male

DRUGS (2)
  1. HUMIRA [Suspect]
     Active Substance: ADALIMUMAB
     Indication: Psoriasis
     Dosage: CITRATE FREE
     Route: 058
  2. HUMIRA [Suspect]
     Active Substance: ADALIMUMAB
     Indication: Psoriatic arthropathy

REACTIONS (10)
  - Victim of crime [Unknown]
  - Psoriasis [Unknown]
  - Wrong technique in product usage process [Not Recovered/Not Resolved]
  - Psoriatic arthropathy [Unknown]
  - Burning sensation [Unknown]
  - Staphylococcal infection [Unknown]
  - Perforation [Unknown]
  - Abscess limb [Unknown]
  - Pain [Unknown]
  - Vascular device infection [Unknown]
